FAERS Safety Report 5201012-0 (Version None)
Quarter: 2007Q1

REPORT INFORMATION
  Report Type: 
  Country: None (occurrence: None)
  Receive Date: 20070108
  Receipt Date: 20070103
  Transmission Date: 20070707
  Serious: Yes (Other)
  Sender: FDA-Public Use
  Company Number: GB-GLAXOSMITHKLINE-B0452634A

PATIENT
  Age: 47 Year
  Sex: Female

DRUGS (5)
  1. SEROXAT [Suspect]
     Indication: DEPRESSION
     Dosage: 20MG PER DAY
     Route: 048
     Dates: start: 20060301
  2. VALPROATE SODIUM [Concomitant]
  3. LORAZEPAM [Concomitant]
  4. QUETIAPINE FUMARATE [Concomitant]
  5. HRT [Concomitant]

REACTIONS (6)
  - CONDITION AGGRAVATED [None]
  - HOMICIDAL IDEATION [None]
  - KERATOCONJUNCTIVITIS SICCA [None]
  - PSYCHOTIC DISORDER [None]
  - SWOLLEN TONGUE [None]
  - TONGUE ULCERATION [None]
